FAERS Safety Report 4847848-7 (Version None)
Quarter: 2005Q4

REPORT INFORMATION
  Report Type: 
  Country: None (occurrence: None)
  Receive Date: 20051207
  Receipt Date: 20051128
  Transmission Date: 20060501
  Serious: Yes (Death)
  Sender: FDA-Public Use
  Company Number: PHBS2005US17502

PATIENT
  Age: 52 Year
  Sex: Male

DRUGS (2)
  1. CYCLOSPORINE [Suspect]
     Indication: RENAL TRANSPLANT
     Route: 065
     Dates: start: 19920101
  2. PREDNISONE [Suspect]
     Indication: RENAL TRANSPLANT

REACTIONS (11)
  - BILE DUCT OBSTRUCTION [None]
  - DIFFUSE LARGE B-CELL LYMPHOMA [None]
  - EPSTEIN-BARR VIRUS INFECTION [None]
  - GALLBLADDER DISORDER [None]
  - GINGIVAL DISORDER [None]
  - LIGHT CHAIN ANALYSIS ABNORMAL [None]
  - LIVER FUNCTION TEST ABNORMAL [None]
  - LYMPHADENOPATHY [None]
  - MALAISE [None]
  - NIGHT SWEATS [None]
  - SKIN LESION [None]
